FAERS Safety Report 6639671-8 (Version None)
Quarter: 2010Q1

REPORT INFORMATION
  Report Type: 
  Country: None (occurrence: None)
  Receive Date: 20100316
  Receipt Date: 20100304
  Transmission Date: 20100710
  Serious: Yes (Other)
  Sender: FDA-Public Use
  Company Number: 229-20484-09121756

PATIENT
  Sex: Male
  Weight: 2.2 kg

DRUGS (7)
  1. INNOHEP [Suspect]
     Indication: DRUG EXPOSURE DURING PREGNANCY
     Dosage: TRANSPLACENTAL
     Route: 064
     Dates: start: 20030803, end: 20031010
  2. METHADONE HCL [Concomitant]
  3. FLOXACILLIN SODIUM [Concomitant]
  4. CALVEPEN (PHENOXYMETHYLPENICILLIN, CALCIUM) [Concomitant]
  5. ACETAMINOPHEN [Concomitant]
  6. AMITRIPTYLIN (AMITRIPTYLINE HYDROCHLORIDE) [Concomitant]
  7. DIAZEPAM [Concomitant]

REACTIONS (2)
  - MATERNAL DRUGS AFFECTING FOETUS [None]
  - PREMATURE LABOUR [None]
